FAERS Safety Report 7691002-0 (Version None)
Quarter: 2011Q3

REPORT INFORMATION
  Report Type: 
  Country: None (occurrence: None)
  Receive Date: 20110812
  Receipt Date: 20110802
  Transmission Date: 20111222
  Serious: Yes (Other)
  Sender: FDA-Public Use
  Company Number: 1004451

PATIENT
  Age: 58 Year
  Sex: Female

DRUGS (4)
  1. DEXAMETHASONE [Suspect]
     Indication: VOMITING
     Dosage: 40 MG   4 MG
  2. DEXAMETHASONE [Suspect]
     Indication: PREMEDICATION
     Dosage: 40 MG   4 MG
  3. CARBOPLATIN [Suspect]
     Indication: ENDOMETRIAL CANCER STAGE III
     Dosage: 600 MG,  , INTRAVENOUS (NOT OTHEWISE SPECIFIED)
     Route: 042
  4. PACLITAXEL [Suspect]
     Indication: ENDOMETRIAL CANCER STAGE III
     Dosage: 320 MG,  ,

REACTIONS (2)
  - STAPHYLOCOCCAL INFECTION [None]
  - PYOMYOSITIS [None]
